FAERS Safety Report 16004869 (Version 1)
Quarter: 2019Q1

REPORT INFORMATION
  Report Type: Spontaneous
  Country: FR (occurrence: FR)
  Receive Date: 20190226
  Receipt Date: 20190226
  Transmission Date: 20190418
  Serious: Yes (Hospitalization)
  Sender: FDA-Public Use
  Company Number: PHHY2019FR042148

PATIENT
  Age: 88 Year
  Sex: Female
  Weight: 61 kg

DRUGS (3)
  1. BISOPROLOL [Suspect]
     Active Substance: BISOPROLOL
     Indication: CARDIAC FAILURE
     Dosage: 1 DF, QD
     Route: 048
  2. LASILIX [Suspect]
     Active Substance: FUROSEMIDE
     Indication: HYPERTENSION
     Dosage: 80 MG, QD
     Route: 048
     Dates: start: 20181002
  3. AMOXICILLINE ARROW [Concomitant]
     Active Substance: AMOXICILLIN
     Indication: BRONCHITIS
     Dosage: 3 G, QD
     Route: 048
     Dates: start: 20190115, end: 20190122

REACTIONS (2)
  - Hypotension [Recovered/Resolved]
  - Fall [Recovered/Resolved]

NARRATIVE: CASE EVENT DATE: 20190123
